FAERS Safety Report 7374693-3 (Version None)
Quarter: 2011Q1

REPORT INFORMATION
  Report Type: 
  Country: None (occurrence: None)
  Receive Date: 20110325
  Receipt Date: 20100805
  Transmission Date: 20110831
  Serious: No
  Sender: FDA-Public Use
  Company Number: US-MYLANLABS-2010S1014009

PATIENT
  Age: 99 Year
  Sex: Female

DRUGS (5)
  1. THYROID TAB [Concomitant]
     Indication: HYPOTHYROIDISM
  2. FOSAMAX [Concomitant]
     Indication: OSTEOPOROSIS
  3. DIOVAN [Concomitant]
     Indication: HYPERTENSION
  4. FENTANYL-100 [Suspect]
     Indication: BACK PAIN
     Dosage: CHANGES Q100 HOURS.
     Route: 062
     Dates: start: 20100701
  5. VITAMIN TAB [Concomitant]
     Indication: MACULAR DEGENERATION
     Dosage: MACULARPROTECTCOMPLETE

REACTIONS (3)
  - DRUG EFFECT INCREASED [None]
  - MENTAL STATUS CHANGES [None]
  - INCORRECT DRUG ADMINISTRATION DURATION [None]
